FAERS Safety Report 7971428 (Version 3)
Quarter: 2013Q3

REPORT INFORMATION
  Report Type: Spontaneous
  Country: US (occurrence: US)
  Receive Date: 20110602
  Receipt Date: 20130724
  Transmission Date: 20140515
  Serious: Yes (Other)
  Sender: FDA-Public Use
  Company Number: US-JNJFOC-20110511425

PATIENT
  Age: 70 Year
  Sex: Female

DRUGS (7)
  1. STELARA [Suspect]
     Indication: PSORIASIS
     Route: 058
     Dates: start: 20100427, end: 20120711
  2. KLONOPIN [Concomitant]
     Route: 048
  3. PAROXETINE HYDROCHLORIDE [Concomitant]
     Route: 048
  4. ALENDRONATE SODIUM [Concomitant]
     Route: 048
  5. EXFORGE [Concomitant]
     Route: 048
  6. ATORVASTATIN [Concomitant]
     Route: 048
  7. FERROUS SULPHATE [Concomitant]
     Route: 048

REACTIONS (1)
  - Pulmonary tuberculosis [Not Recovered/Not Resolved]
